FAERS Safety Report 8092850-8 (Version None)
Quarter: 2012Q1

REPORT INFORMATION
  Report Type: 
  Country: None (occurrence: None)
  Receive Date: 20120128
  Receipt Date: 20110723
  Transmission Date: 20120608
  Serious: No
  Sender: FDA-Public Use
  Company Number: US-ABBOTT-11P-163-0841666-00

PATIENT
  Sex: Male

DRUGS (1)
  1. HUMIRA [Suspect]
     Indication: ANKYLOSING SPONDYLITIS
     Dates: start: 20110601, end: 20110720

REACTIONS (3)
  - OROPHARYNGEAL PAIN [None]
  - RASH VESICULAR [None]
  - PHARYNGEAL ULCERATION [None]
